FAERS Safety Report 19603457 (Version 3)
Quarter: 2023Q4

REPORT INFORMATION
  Report Type: Report from Study
  Country: PT (occurrence: PT)
  Receive Date: 20210724
  Receipt Date: 20231214
  Transmission Date: 20240109
  Serious: Yes (Hospitalization)
  Sender: FDA-Public Use
  Company Number: PT-CELLTRION INC.-2021PT008864

PATIENT

DRUGS (18)
  1. HERCEPTIN [Suspect]
     Active Substance: TRASTUZUMAB
     Indication: HER2 positive breast cancer
     Dosage: 600 MILLIGRAM, EVERY 3 WEEKS
     Route: 042
     Dates: start: 20170504, end: 20170830
  2. HERCEPTIN [Suspect]
     Active Substance: TRASTUZUMAB
     Dosage: 600 MILLIGRAM, EVERY 3 WEEKS
     Route: 042
     Dates: start: 20180221, end: 20181218
  3. HERCEPTIN [Suspect]
     Active Substance: TRASTUZUMAB
     Dosage: 600 MILLIGRAM, EVERY 3 WEEKS
     Route: 042
     Dates: start: 20171010, end: 20180102
  4. HERCEPTIN [Suspect]
     Active Substance: TRASTUZUMAB
     Dosage: 600 MILLIGRAM, EVERY 3 WEEKS
     Route: 042
     Dates: start: 20170120, end: 20170323
  5. TRASTUZUMAB [Suspect]
     Active Substance: TRASTUZUMAB
     Indication: Breast cancer metastatic
     Dosage: 600 MG, EVERY 3 WEEKS
     Route: 042
     Dates: start: 20171010, end: 20180102
  6. TRASTUZUMAB [Suspect]
     Active Substance: TRASTUZUMAB
     Dosage: 600 MG, EVERY 3 WEEKS
     Route: 042
     Dates: start: 20170504, end: 20170830
  7. TRASTUZUMAB [Suspect]
     Active Substance: TRASTUZUMAB
     Dosage: 600 MG, EVERY 3 WEEKS
     Route: 042
     Dates: start: 20180221, end: 20181218
  8. TRASTUZUMAB [Suspect]
     Active Substance: TRASTUZUMAB
     Dosage: 600 MG, EVERY 3 WEEKS
     Route: 042
     Dates: start: 20170120, end: 20170323
  9. TRASTUZUMAB [Suspect]
     Active Substance: TRASTUZUMAB
     Dosage: 600 MG
     Route: 042
     Dates: start: 20190116
  10. TRASTUZUMAB [Suspect]
     Active Substance: TRASTUZUMAB
     Dosage: 6 MG/KG
     Route: 042
     Dates: start: 20170504
  11. PERTUZUMAB [Suspect]
     Active Substance: PERTUZUMAB
     Indication: Breast cancer metastatic
     Dosage: 420 MG, EVERY 3 WEEKS
     Route: 042
     Dates: start: 20170504, end: 20170731
  12. PERTUZUMAB [Suspect]
     Active Substance: PERTUZUMAB
     Indication: Breast cancer metastatic
     Dosage: 420 MG, EVERY 3 WEEKS
     Route: 042
     Dates: start: 20170213, end: 20170323
  13. DOCETAXEL [Suspect]
     Active Substance: DOCETAXEL\DOCETAXEL ANHYDROUS
     Indication: Breast cancer metastatic
     Dosage: 115.05 MG, Q2WEEKS
     Route: 042
     Dates: start: 20170121, end: 20170323
  14. DOCETAXEL [Suspect]
     Active Substance: DOCETAXEL\DOCETAXEL ANHYDROUS
     Dosage: 115.05 MG
     Route: 042
     Dates: start: 20170504, end: 20170614
  15. ZOLEDRONIC ACID [Concomitant]
     Active Substance: ZOLEDRONIC ACID
     Dosage: 5 MG, EVERY 3 WEEKS
     Route: 042
     Dates: start: 20180830, end: 20190116
  16. ZOLEDRONIC ACID [Concomitant]
     Active Substance: ZOLEDRONIC ACID
     Dosage: 5 MG, EVERY 3 WEEKS
     Route: 042
     Dates: start: 20190221
  17. OMEPRAZOLE [Concomitant]
     Active Substance: OMEPRAZOLE
     Dosage: ONGOING = CHECKED
     Dates: start: 20170615
  18. OLANZAPINE [Concomitant]
     Active Substance: OLANZAPINE
     Dosage: ONGOING = NOT CHECKED
     Dates: start: 20170615, end: 20190401

REACTIONS (4)
  - General physical health deterioration [Recovered/Resolved]
  - Colitis [Recovered/Resolved]
  - Large intestine infection [Recovered/Resolved]
  - Ejection fraction decreased [Recovered/Resolved]

NARRATIVE: CASE EVENT DATE: 20170617
